FAERS Safety Report 8966413 (Version 3)
Quarter: 2013Q2

REPORT INFORMATION
  Report Type: Spontaneous
  Country: FR (occurrence: FR)
  Receive Date: 20121214
  Receipt Date: 20130524
  Transmission Date: 20140414
  Serious: Yes (Hospitalization)
  Sender: FDA-Public Use
  Company Number: FR-GLAXOSMITHKLINE-B0851056A

PATIENT
  Sex: Male

DRUGS (4)
  1. VENTOLINE [Suspect]
     Indication: ASTHMA EXERCISE INDUCED
     Route: 055
  2. BECOTIDE [Concomitant]
     Indication: ASTHMA
     Route: 055
  3. KARDEGIC [Concomitant]
     Indication: ATRIAL SEPTAL DEFECT
     Dosage: 75MCG PER DAY
     Route: 048
     Dates: start: 2010
  4. SEROPLEX [Concomitant]
     Dosage: 10MG PER DAY
     Dates: start: 2010

REACTIONS (4)
  - Epilepsy [Not Recovered/Not Resolved]
  - Loss of consciousness [Recovered/Resolved]
  - Wound [Recovered/Resolved]
  - Fall [Recovered/Resolved]
